FAERS Safety Report 8506846-2 (Version None)
Quarter: 2012Q3

REPORT INFORMATION
  Report Type: 
  Country: None (occurrence: None)
  Receive Date: 20120712
  Receipt Date: 20120706
  Transmission Date: 20120928
  Serious: Yes (Hospitalization)
  Sender: FDA-Public Use
  Company Number: FR-BAYER-2011-100129

PATIENT
  Age: 61 Year
  Sex: Female

DRUGS (6)
  1. CIPROFLOXACIN [Suspect]
     Dosage: UNK
     Route: 042
     Dates: start: 20110718, end: 20110729
  2. HEXABRIX [Suspect]
     Indication: ANGIOGRAM
     Dosage: UNK
     Route: 042
     Dates: start: 20110713, end: 20110713
  3. CLAFORAN [Suspect]
     Indication: ANTIBIOTIC THERAPY
     Dosage: UNK
     Route: 042
     Dates: start: 20110703, end: 20110729
  4. FLUCONAZOLE [Suspect]
     Dosage: UNK
     Route: 042
     Dates: start: 20110718, end: 20110729
  5. VANCOMYCIN [Suspect]
     Indication: ANTIBIOTIC THERAPY
     Dosage: UNK
     Route: 042
     Dates: start: 20110703, end: 20110729
  6. NEXIUM [Suspect]
     Dosage: UNK
     Route: 042
     Dates: start: 20110703, end: 20110808

REACTIONS (3)
  - SEPTIC SHOCK [None]
  - PERICARDIAL EFFUSION [None]
  - DRUG RASH WITH EOSINOPHILIA AND SYSTEMIC SYMPTOMS [None]
